FAERS Safety Report 6955916-9 (Version None)
Quarter: 2010Q3

REPORT INFORMATION
  Report Type: 
  Country: None (occurrence: None)
  Receive Date: 20100826
  Receipt Date: 20100826
  Transmission Date: 20110219
  Serious: Yes (Other)
  Sender: FDA-Public Use
  Company Number: None

PATIENT
  Sex: Female
  Weight: 63.5036 kg

DRUGS (1)
  1. OMEPRAZOLE [Suspect]

REACTIONS (3)
  - CYSTITIS [None]
  - DIARRHOEA [None]
  - NO THERAPEUTIC RESPONSE [None]
